FAERS Safety Report 7383843-4 (Version None)
Quarter: 2011Q1

REPORT INFORMATION
  Report Type: 
  Country: None (occurrence: None)
  Receive Date: 20110330
  Receipt Date: 20110307
  Transmission Date: 20110831
  Serious: Yes (Other)
  Sender: FDA-Public Use
  Company Number: KR-BAXTER-2011BH006017

PATIENT
  Age: 32 Year
  Sex: Male

DRUGS (4)
  1. THIOPENTAL SODIUM [Suspect]
     Indication: GENERAL ANAESTHESIA
     Route: 042
  2. SEVOFLURANE [Suspect]
     Indication: GENERAL ANAESTHESIA
     Route: 055
  3. SUCCINYLCHOLINE CHLORIDE [Concomitant]
     Indication: PRODUCT USED FOR UNKNOWN INDICATION
     Route: 042
  4. OXYGEN [Concomitant]
     Indication: ANAESTHESIA
     Route: 055

REACTIONS (1)
  - LONG QT SYNDROME [None]
